FAERS Safety Report 8206527-9 (Version None)
Quarter: 2012Q1

REPORT INFORMATION
  Report Type: 
  Country: None (occurrence: None)
  Receive Date: 20120313
  Receipt Date: 20120227
  Transmission Date: 20120608
  Serious: Yes (Hospitalization)
  Sender: FDA-Public Use
  Company Number: CA-WATSON-2012-04302

PATIENT
  Age: 50 Year
  Sex: Male

DRUGS (2)
  1. CIPROFLOXACIN HCL [Suspect]
     Indication: PNEUMONIA ASPIRATION
     Dosage: Q12H, X2 DOSES
     Route: 042
  2. METHADON HCL TAB [Suspect]

REACTIONS (4)
  - RESPIRATORY DEPRESSION [None]
  - DRUG INTERACTION [None]
  - SOMNOLENCE [None]
  - MIOSIS [None]
